FAERS Safety Report 6309876-4 (Version None)
Quarter: 2009Q3

REPORT INFORMATION
  Report Type: 
  Country: None (occurrence: None)
  Receive Date: 20090814
  Receipt Date: 20090731
  Transmission Date: 20100115
  Serious: Yes (Other)
  Sender: FDA-Public Use
  Company Number: ES-AVENTIS-200621981GDDC

PATIENT
  Age: 55 Year
  Sex: Male

DRUGS (10)
  1. TAXOTERE [Suspect]
     Dosage: DOSE: UNK
     Dates: start: 20061222, end: 20061222
  2. PACLITAXEL [Suspect]
     Dates: start: 20061110, end: 20061201
  3. DEXAMETHASONE [Concomitant]
  4. CARBOPLATIN [Concomitant]
  5. BEVACIZUMAB [Concomitant]
  6. METOCLOPRAMIDE [Concomitant]
  7. PREDNISONE [Concomitant]
  8. CODEINE [Concomitant]
  9. OMEPRAZOLE [Concomitant]
  10. VALSARTAN [Concomitant]

REACTIONS (4)
  - CHEST PAIN [None]
  - DRUG HYPERSENSITIVITY [None]
  - DYSPNOEA [None]
  - FEELING HOT [None]
